FAERS Safety Report 15315657 (Version 3)
Quarter: 2018Q3

REPORT INFORMATION
  Report Type: Spontaneous
  Country: GB (occurrence: GB)
  Receive Date: 20180824
  Receipt Date: 20180824
  Transmission Date: 20181010
  Serious: Yes (Other)
  Sender: FDA-Public Use
  Company Number: PHHY2018GB076530

PATIENT
  Age: 59 Year
  Sex: Female
  Weight: 63.5 kg

DRUGS (1)
  1. MAXITROL [Suspect]
     Active Substance: DEXAMETHASONE\NEOMYCIN SULFATE\POLYMYXIN B SULFATE
     Indication: CATARACT OPERATION
     Dosage: 4 GTT, QD
     Route: 047
     Dates: start: 20180619

REACTIONS (6)
  - Vitreous floaters [Unknown]
  - Tunnel vision [Unknown]
  - Condition aggravated [Unknown]
  - Vision blurred [Unknown]
  - Loss of visual contrast sensitivity [Unknown]
  - Intraocular pressure increased [Not Recovered/Not Resolved]

NARRATIVE: CASE EVENT DATE: 20180703
